FAERS Safety Report 9217680 (Version 2)
Quarter: 2013Q2

REPORT INFORMATION
  Report Type: Report from Study
  Country: NL (occurrence: NL)
  Receive Date: 20130408
  Receipt Date: 20130622
  Transmission Date: 20140414
  Serious: Yes (Death)
  Sender: FDA-Public Use
  Company Number: NL-ASTRAZENECA-2013SE22066

PATIENT
  Age: 142 Day
  Sex: Male
  Weight: 5.1 kg

DRUGS (6)
  1. SYNAGIS [Suspect]
     Indication: PREMATURE BABY
     Route: 030
     Dates: start: 20130121, end: 20130121
  2. SYNAGIS [Suspect]
     Indication: CARDIOMYOPATHY
     Route: 030
     Dates: start: 20130121, end: 20130121
  3. SYNAGIS [Suspect]
     Indication: PREMATURE BABY
     Route: 030
     Dates: start: 20130215, end: 20130215
  4. SYNAGIS [Suspect]
     Indication: CARDIOMYOPATHY
     Route: 030
     Dates: start: 20130215, end: 20130215
  5. SYNAGIS [Suspect]
     Indication: PREMATURE BABY
     Route: 030
     Dates: start: 20130315, end: 20130315
  6. SYNAGIS [Suspect]
     Indication: CARDIOMYOPATHY
     Route: 030
     Dates: start: 20130315, end: 20130315

REACTIONS (3)
  - Aspiration [Fatal]
  - Respiratory failure [Fatal]
  - Cardiac failure [Fatal]
